FAERS Safety Report 5070156-9 (Version None)
Quarter: 2006Q3

REPORT INFORMATION
  Report Type: 
  Country: None (occurrence: None)
  Receive Date: 20060803
  Receipt Date: 20060728
  Transmission Date: 20061208
  Serious: Yes (Death)
  Sender: FDA-Public Use
  Company Number: 2006AP03521

PATIENT
  Age: 43 Year
  Sex: Female

DRUGS (9)
  1. SEROQUEL [Suspect]
     Route: 048
     Dates: start: 20060721
  2. SEROQUEL [Suspect]
     Dosage: 66 TABLETS WERE TAKEN
     Route: 048
     Dates: start: 20060724
  3. EURODIN [Suspect]
     Route: 048
     Dates: start: 20060721
  4. EURODIN [Suspect]
     Dosage: 6 TABLETS WERE TAKEN
     Route: 048
     Dates: start: 20060724
  5. ROHYPNOL [Suspect]
     Route: 048
     Dates: start: 20060721
  6. ROHYPNOL [Suspect]
     Dosage: 6 TABLETS WERE TAKEN
     Route: 048
     Dates: start: 20060724
  7. TOLEDOMIN [Concomitant]
     Route: 048
     Dates: start: 20060721
  8. MEILAX [Concomitant]
     Route: 048
     Dates: start: 20060721
  9. SOLANAX [Concomitant]
     Route: 048
     Dates: start: 20060721

REACTIONS (3)
  - COMPLETED SUICIDE [None]
  - INTENTIONAL OVERDOSE [None]
  - MULTIPLE DRUG OVERDOSE INTENTIONAL [None]
